FAERS Safety Report 4527255-7 (Version None)
Quarter: 2004Q4

REPORT INFORMATION
  Report Type: 
  Country: None (occurrence: None)
  Receive Date: 20041130
  Receipt Date: 20040802
  Transmission Date: 20050328
  Serious: No
  Sender: FDA-Public Use
  Company Number: FABR-10718

PATIENT
  Age: 29 Year
  Sex: Male
  Weight: 101.5 kg

DRUGS (4)
  1. FABRAZYME [Suspect]
     Indication: FABRY'S DISEASE
     Dosage: 105 MG Q2WKS IV
     Route: 042
     Dates: start: 20030918, end: 20031201
  2. FABRAZYME [Suspect]
     Indication: FABRY'S DISEASE
     Dosage: 105 MG Q2WKS IV
     Route: 042
     Dates: start: 20040301
  3. CLARITIN [Concomitant]
  4. ACETAMINOPHEN [Concomitant]

REACTIONS (5)
  - BODY TEMPERATURE INCREASED [None]
  - CHILLS [None]
  - SEPTOPLASTY [None]
  - SINUS DISORDER [None]
  - TURBINECTOMY [None]
